FAERS Safety Report 9923584 (Version 1)
Quarter: 2014Q1

REPORT INFORMATION
  Report Type: Spontaneous
  Country: US (occurrence: US)
  Receive Date: 20140225
  Receipt Date: 20140225
  Transmission Date: 20141002
  Serious: No
  Sender: FDA-Public Use
  Company Number: US-AMGEN-USASP2013087559

PATIENT
  Age: 35 Year
  Sex: Female
  Weight: 76.19 kg

DRUGS (10)
  1. ENBREL [Suspect]
     Indication: RHEUMATOID ARTHRITIS
     Dosage: 50 MG, QWK
     Route: 058
     Dates: start: 20131210
  2. PREDNISONE [Concomitant]
     Dosage: UNK
  3. ARAVA [Concomitant]
     Dosage: UNK
  4. FLEXERIL                           /00428402/ [Concomitant]
     Dosage: UNK
  5. FOLBEE [Concomitant]
     Dosage: UNK
  6. FOLIC ACID [Concomitant]
     Dosage: UNK
  7. ATENOLOL [Concomitant]
     Dosage: UNK
  8. HYDROCODONE [Concomitant]
     Dosage: UNK
  9. IBUPROFEN [Concomitant]
     Dosage: UNK
  10. BACTRIM [Concomitant]
     Indication: KIDNEY INFECTION
     Dosage: UNK UNK, AS NECESSARY

REACTIONS (2)
  - Abdominal discomfort [Unknown]
  - Injection site pain [Recovered/Resolved]
